FAERS Safety Report 24781533 (Version 1)
Quarter: 2024Q4

REPORT INFORMATION
  Report Type: Spontaneous
  Country: US (occurrence: US)
  Receive Date: 20241227
  Receipt Date: 20241227
  Transmission Date: 20250115
  Serious: Yes (Other)
  Sender: CHIESI
  Company Number: US-CHIESI-2024CHF08315

PATIENT
  Sex: Male
  Weight: 63.93 kg

DRUGS (1)
  1. FILSUVEZ [Suspect]
     Active Substance: BIRCH TRITERPENES
     Indication: Epidermolysis bullosa
     Dosage: UNK UNK, PRN
     Route: 061
     Dates: start: 20240627

REACTIONS (1)
  - Epilepsy [Recovering/Resolving]
